FAERS Safety Report 13140106 (Version 1)
Quarter: 2017Q1

REPORT INFORMATION
  Report Type: Spontaneous
  Country: US (occurrence: US)
  Receive Date: 20170123
  Receipt Date: 20170123
  Transmission Date: 20170428
  Serious: No
  Sender: FDA-Public Use
  Company Number: US-UNITED THERAPEUTICS-UNT-2016-017278

PATIENT
  Age: 59 Year
  Sex: Male
  Weight: 76.64 kg

DRUGS (3)
  1. REVATIO [Concomitant]
     Active Substance: SILDENAFIL CITRATE
     Indication: PRODUCT USED FOR UNKNOWN INDICATION
  2. REMODULIN [Suspect]
     Active Substance: TREPROSTINIL
     Indication: PULMONARY ARTERIAL HYPERTENSION
     Dosage: 0.060 ?G/KG, CONTINUING
     Route: 058
     Dates: start: 20081027
  3. REMODULIN [Suspect]
     Active Substance: TREPROSTINIL
     Dosage: UNK
     Route: 058

REACTIONS (15)
  - Depressed mood [Unknown]
  - Asthenia [Recovering/Resolving]
  - Malaise [Unknown]
  - Erythema [Unknown]
  - Headache [Recovering/Resolving]
  - Fall [Recovered/Resolved]
  - Infusion site extravasation [Recovered/Resolved]
  - Chest discomfort [Recovering/Resolving]
  - Device issue [Recovered/Resolved]
  - Heart rate abnormal [Recovering/Resolving]
  - Flushing [Unknown]
  - Balance disorder [Recovering/Resolving]
  - Fatigue [Recovering/Resolving]
  - Hypertension [Recovering/Resolving]
  - Feeling abnormal [Recovering/Resolving]

NARRATIVE: CASE EVENT DATE: 201611
